FAERS Safety Report 14524955 (Version 1)
Quarter: 2018Q1

REPORT INFORMATION
  Report Type: Spontaneous
  Country: US (occurrence: US)
  Receive Date: 20180210
  Receipt Date: 20180210
  Transmission Date: 20180509
  Serious: No
  Sender: FDA-Public Use
  Company Number: None

PATIENT
  Age: 55 Year
  Sex: Female

DRUGS (1)
  1. EPCLUSA [Suspect]
     Active Substance: SOFOSBUVIR\VELPATASVIR

REACTIONS (6)
  - Diarrhoea [None]
  - Nausea [None]
  - Pyrexia [None]
  - Dizziness [None]
  - Sinusitis [None]
  - Ear infection [None]

NARRATIVE: CASE EVENT DATE: 20180210
